FAERS Safety Report 25500818 (Version 1)
Quarter: 2025Q3

REPORT INFORMATION
  Report Type: Spontaneous
  Country: US (occurrence: None)
  Receive Date: 20250701
  Receipt Date: 20250701
  Transmission Date: 20251021
  Serious: No
  Sender: FDA-CTU
  Company Number: None

PATIENT
  Age: 67 Year
  Sex: Female

DRUGS (1)
  1. SORAFENIB [Suspect]
     Active Substance: SORAFENIB
     Indication: Metastases to lung
     Dosage: FREQUENCY : TWICE A DAY;?
     Route: 048
     Dates: start: 20240807

REACTIONS (9)
  - Diarrhoea [None]
  - Pain [None]
  - Dry skin [None]
  - Ear injury [None]
  - Skin laceration [None]
  - Insomnia [None]
  - Malignant neoplasm progression [None]
  - Intentional product use issue [None]
  - Pruritus [None]

NARRATIVE: CASE EVENT DATE: 20250630
